FAERS Safety Report 6011733-8 (Version None)
Quarter: 2008Q4

REPORT INFORMATION
  Report Type: 
  Country: None (occurrence: None)
  Receive Date: 20081218
  Receipt Date: 20070417
  Transmission Date: 20090506
  Serious: Yes (Other)
  Sender: FDA-Public Use
  Company Number: JP-ROCHE-486195

PATIENT
  Sex: Female
  Weight: 51 kg

DRUGS (4)
  1. TAMIFLU [Suspect]
     Route: 048
     Dates: start: 20070226, end: 20070226
  2. CLARITHROMYCIN [Concomitant]
     Route: 048
     Dates: start: 20070226
  3. ASTOMIN [Concomitant]
     Route: 048
     Dates: start: 20070226
  4. DASEN [Concomitant]
     Route: 048
     Dates: start: 20070226

REACTIONS (4)
  - FEELING ABNORMAL [None]
  - HALLUCINATION [None]
  - HALLUCINATION, VISUAL [None]
  - NAUSEA [None]
